FAERS Safety Report 7040069-1 (Version None)
Quarter: 2010Q4

REPORT INFORMATION
  Report Type: 
  Country: None (occurrence: None)
  Receive Date: 20101012
  Receipt Date: 20100928
  Transmission Date: 20110411
  Serious: Yes (Other)
  Sender: FDA-Public Use
  Company Number: PHHY2010FR64712

PATIENT
  Sex: Female

DRUGS (2)
  1. VALSARTAN  AND HYDROCHLOROTHIAZIDE [Suspect]
     Indication: HYPERTENSION
     Dosage: 160/25 MG QD
     Dates: start: 20050101
  2. METHOTREXATE [Concomitant]

REACTIONS (3)
  - LYMPHOID TISSUE HYPERPLASIA [None]
  - OESOPHAGEAL MUCOSAL HYPERPLASIA [None]
  - PHARYNGEAL OEDEMA [None]
